FAERS Safety Report 7072943-4 (Version None)
Quarter: 2010Q4

REPORT INFORMATION
  Report Type: 
  Country: None (occurrence: None)
  Receive Date: 20101029
  Receipt Date: 20100405
  Transmission Date: 20110411
  Serious: No
  Sender: FDA-Public Use
  Company Number: A0853481A

PATIENT
  Age: 51 Year
  Sex: Male

DRUGS (3)
  1. ADVAIR DISKUS 100/50 [Suspect]
     Indication: ASTHMA
     Route: 055
  2. COMBIVENT [Concomitant]
  3. OXYCODONE [Concomitant]

REACTIONS (2)
  - ACCIDENTAL OVERDOSE [None]
  - RESPIRATORY DISORDER [None]
